FAERS Safety Report 10726451 (Version 1)
Quarter: 2015Q1

REPORT INFORMATION
  Report Type: Spontaneous
  Country: US (occurrence: None)
  Receive Date: 20150120
  Receipt Date: 20150120
  Transmission Date: 20150721
  Serious: Yes (Death, Life-Threatening, Hospitalization)
  Sender: FDA-Public Use
  Company Number: None

PATIENT
  Age: 82 Year
  Sex: Male
  Weight: 83.5 kg

DRUGS (27)
  1. PHYTONADIONE (MEPHYTON) [Concomitant]
  2. WARFARIN (COUMADIN) [Concomitant]
  3. FUROSEMIDE  (LASIX) [Concomitant]
  4. LISINOPRIL. [Concomitant]
     Active Substance: LISINOPRIL
  5. FISH OIL-OMEGA-3 FATTY ACIDS [Concomitant]
  6. AMIODARONE [Suspect]
     Active Substance: AMIODARONE
     Indication: ATRIAL FIBRILLATION
     Route: 048
     Dates: start: 20130204, end: 20141218
  7. LOPRESSOR [Concomitant]
     Active Substance: METOPROLOL TARTRATE
  8. CARBIDOPA-LEVODOPA CR [Concomitant]
  9. LANTUS [Concomitant]
     Active Substance: INSULIN GLARGINE
  10. LIPITOR [Concomitant]
     Active Substance: ATORVASTATIN CALCIUM
  11. ALBUTEROL HFA (PROAIR HFA) [Concomitant]
  12. POTASSIUM CHLORIDE. [Concomitant]
     Active Substance: POTASSIUM CHLORIDE
  13. ENTERIC COATED (ECOTRIN LOW STRENGTH) [Concomitant]
  14. METHIMAZOLE (TAPAZOLE) [Concomitant]
  15. MAGNESIIUM [Concomitant]
  16. VIT C/E/ZN/COPPR/LUTEIN/ZEAXAN [Concomitant]
  17. LANCETS (ONE TOUCH ULTRASOFT LANCETS) [Concomitant]
  18. PHOS-METHYL-B-12 (FOLTANX) [Concomitant]
  19. INSULIN LISPRO [Concomitant]
     Active Substance: INSULIN LISPRO
  20. INSULIN SYRINGE-NEEDLE U-100 (INSULIN SYRINGE) [Concomitant]
  21. ASPIRIN. [Concomitant]
     Active Substance: ASPIRIN
  22. MILK THISTLE [Concomitant]
     Active Substance: MILK THISTLE
  23. TRAMADOL (ULTRAM) [Concomitant]
  24. L-MFOLATE-B6 [Concomitant]
  25. ISOSORBIDE MONONITRATE ER (IMDUR) [Concomitant]
  26. METOLAZONE (ZAROXOLYN) [Concomitant]
  27. METOPROLOL TARTRATE. [Concomitant]
     Active Substance: METOPROLOL TARTRATE

REACTIONS (11)
  - Dizziness [None]
  - Atrial fibrillation [None]
  - Respiratory acidosis [None]
  - Hyperkalaemia [None]
  - Cardiac failure congestive [None]
  - Metabolic acidosis [None]
  - Asthenia [None]
  - Hypotension [None]
  - Hyperthyroidism [None]
  - Dyspnoea [None]
  - Diabetes mellitus [None]

NARRATIVE: CASE EVENT DATE: 20140908
